FAERS Safety Report 20893850 (Version 1)
Quarter: 2022Q2

REPORT INFORMATION
  Report Type: Spontaneous
  Country: US (occurrence: None)
  Receive Date: 20220527
  Receipt Date: 20220527
  Transmission Date: 20220720
  Serious: Yes (Other)
  Sender: FDA-Public Use
  Company Number: None

PATIENT
  Age: 45 Year
  Sex: Female
  Weight: 60.3 kg

DRUGS (1)
  1. EVUSHELD [Suspect]
     Active Substance: CILGAVIMAB\TIXAGEVIMAB
     Indication: COVID-19 prophylaxis
     Dosage: FREQUENCY : ONCE;?
     Route: 030
     Dates: start: 20220527, end: 20220527

REACTIONS (7)
  - Flushing [None]
  - Headache [None]
  - Paraesthesia [None]
  - Neuropathy peripheral [None]
  - Rash erythematous [None]
  - Rash [None]
  - Abdominal discomfort [None]

NARRATIVE: CASE EVENT DATE: 20220527
